FAERS Safety Report 7398756-1 (Version None)
Quarter: 2011Q2

REPORT INFORMATION
  Report Type: 
  Country: None (occurrence: None)
  Receive Date: 20110407
  Receipt Date: 20110401
  Transmission Date: 20111010
  Serious: Yes (Hospitalization)
  Sender: FDA-Public Use
  Company Number: US-TEVA-274380USA

PATIENT
  Age: 85 Year
  Sex: Female
  Weight: 71.278 kg

DRUGS (4)
  1. ADVIL PM [Suspect]
     Indication: INSOMNIA
     Route: 048
     Dates: start: 20110301, end: 20110301
  2. WARFARIN SODIUM [Suspect]
  3. ACETYLSALICYLIC ACID SRT [Concomitant]
     Indication: ATRIAL FIBRILLATION
  4. ERGOCALCIFEROL [Concomitant]

REACTIONS (3)
  - INSOMNIA [None]
  - ESCHERICHIA SEPSIS [None]
  - URINARY TRACT INFECTION [None]
